FAERS Safety Report 9157646 (Version 1)
Quarter: 2013Q1

REPORT INFORMATION
  Report Type: Spontaneous
  Country: US (occurrence: US)
  Receive Date: 20130312
  Receipt Date: 20130312
  Transmission Date: 20140127
  Serious: Yes (Hospitalization)
  Sender: FDA-Public Use
  Company Number: US-UCBSA-079893

PATIENT
  Age: 47 Year
  Sex: Female

DRUGS (17)
  1. KEPPRA [Suspect]
     Indication: CONVULSION
     Dates: start: 20120902, end: 20121029
  2. XALKORI [Interacting]
     Indication: LUNG NEOPLASM MALIGNANT
     Route: 048
     Dates: start: 20120927, end: 20121015
  3. XALKORI [Interacting]
     Indication: BLOOD ALKALINE PHOSPHATASE
     Route: 048
     Dates: start: 20120927, end: 20121015
  4. XALKORI [Interacting]
     Indication: LUNG NEOPLASM MALIGNANT
     Route: 048
     Dates: start: 201210, end: 201210
  5. XALKORI [Interacting]
     Indication: BLOOD ALKALINE PHOSPHATASE
     Route: 048
     Dates: start: 201210, end: 201210
  6. XALKORI [Interacting]
     Indication: LUNG NEOPLASM MALIGNANT
     Dosage: IN THE EVENING
     Route: 048
     Dates: start: 20121120
  7. XALKORI [Interacting]
     Indication: BLOOD ALKALINE PHOSPHATASE
     Dosage: IN THE EVENING
     Route: 048
     Dates: start: 20121120
  8. PROTONIX [Concomitant]
     Indication: GASTROOESOPHAGEAL REFLUX DISEASE
     Dates: end: 20121029
  9. PROTONIX [Concomitant]
     Indication: GASTROOESOPHAGEAL REFLUX DISEASE
     Dates: start: 2012
  10. ADVAIR [Concomitant]
     Indication: ASTHMA
     Dosage: 250/50 ONE PUFF B.I.D.
     Route: 055
  11. YASMIN [Concomitant]
  12. ATIVAN [Concomitant]
     Indication: NAUSEA
     Dosage: 0.5 MG EVERY 6 HOURS AS REQUIRED
     Route: 048
     Dates: start: 201210
  13. ATIVAN [Concomitant]
     Indication: VOMITING
     Dosage: 0.5 MG EVERY 6 HOURS AS REQUIRED
     Route: 048
     Dates: start: 201210
  14. ZOFRAN [Concomitant]
     Route: 048
     Dates: start: 2012
  15. IMODIUM [Concomitant]
     Dates: start: 2012
  16. OXYCODONE [Concomitant]
     Indication: ABDOMINAL DISCOMFORT
     Dosage: 5 MG EVERY 4 HOUUS AS REQUIRED
     Route: 048
     Dates: start: 201210
  17. OXYCODONE [Concomitant]
     Indication: ABDOMINAL DISCOMFORT
     Dosage: 2.5 TO 5 MG EVERY 4 HOUUS AS REQUIRED
     Route: 048
     Dates: start: 20121031

REACTIONS (9)
  - Metastases to liver [Unknown]
  - Nausea [Recovered/Resolved]
  - Vomiting [Recovered/Resolved]
  - Abdominal pain [Recovered/Resolved]
  - Hepatic enzyme increased [Recovering/Resolving]
  - Diarrhoea [Unknown]
  - Photopsia [Unknown]
  - Arthralgia [Unknown]
  - Drug interaction [Unknown]
